FAERS Safety Report 7962313-6 (Version None)
Quarter: 2011Q4

REPORT INFORMATION
  Report Type: 
  Country: None (occurrence: None)
  Receive Date: 20111206
  Receipt Date: 20111129
  Transmission Date: 20120403
  Serious: Yes (Other)
  Sender: FDA-Public Use
  Company Number: AUR-APL-2011-05969

PATIENT
  Age: 68 Year
  Sex: Male

DRUGS (2)
  1. METHYLTHIONINIUM CHLORIDE (METHYLTHIONINIUM CHLORIDE) [Suspect]
     Indication: VASOPLEGIA SYNDROME
     Dosage: INTRAVENOUS
     Route: 042
  2. SERTRALINE HYDROCHLORIDE [Suspect]
     Indication: PRODUCT USED FOR UNKNOWN INDICATION

REACTIONS (4)
  - SEROTONIN SYNDROME [None]
  - POST PROCEDURAL COMPLICATION [None]
  - TAKAYASU'S ARTERITIS [None]
  - VASOPLEGIA SYNDROME [None]
